FAERS Safety Report 4612874-X (Version None)
Quarter: 2005Q1

REPORT INFORMATION
  Report Type: 
  Country: None (occurrence: None)
  Receive Date: 20050318
  Receipt Date: 20050311
  Transmission Date: 20050727
  Serious: Yes (Hospitalization)
  Sender: FDA-Public Use
  Company Number: US-BRISTOL-MYERS SQUIBB COMPANY-12895520

PATIENT
  Age: 85 Year
  Sex: Male

DRUGS (9)
  1. CETUXIMAB [Suspect]
     Indication: LUNG CANCER METASTATIC
     Dosage: PT REC'D 2 COURSES.
     Route: 042
     Dates: start: 20050214, end: 20050214
  2. CARBOPLATIN [Suspect]
     Indication: LUNG CANCER METASTATIC
     Dosage: PT REC'D 2 COURSES.
     Route: 042
     Dates: start: 20050214, end: 20050214
  3. TAXOTERE [Suspect]
     Indication: LUNG CANCER METASTATIC
     Dosage: PT REC'D 2 COURSES.
     Route: 042
     Dates: start: 20050214, end: 20050214
  4. FINASTERIDE [Concomitant]
     Dates: start: 20010501
  5. FOSINOPRIL SODIUM [Concomitant]
     Dates: start: 20010501
  6. CELEXA [Concomitant]
     Dates: start: 20020801
  7. ASACOL [Concomitant]
     Dates: start: 20020801, end: 20050214
  8. ANZEMET [Concomitant]
     Dates: start: 20050214
  9. DECADRON [Concomitant]
     Dates: start: 20050213

REACTIONS (1)
  - HYPOXIA [None]
